FAERS Safety Report 7216906-4 (Version None)
Quarter: 2010Q4

REPORT INFORMATION
  Report Type: 
  Country: None (occurrence: None)
  Receive Date: 20101216
  Receipt Date: 20101216
  Transmission Date: 20110411
  Serious: Yes (Other)
  Sender: FDA-Public Use
  Company Number: 024229

PATIENT
  Sex: Female

DRUGS (1)
  1. KEPPRA [Suspect]
     Indication: EPILEPSY
     Dosage: (500 MG BID, 500 MG TABLETS ORAL), (500 MG BID, 1000 MG TABLET, HALF TABLET TWICE DAILY ORAL)
     Route: 048
     Dates: end: 20101001

REACTIONS (3)
  - MUCOUS MEMBRANE DISORDER [None]
  - RASH [None]
  - REACTION TO DRUG EXCIPIENTS [None]
